FAERS Safety Report 9879679 (Version 3)
Quarter: 2014Q2

REPORT INFORMATION
  Report Type: Spontaneous
  Country: US (occurrence: US)
  Receive Date: 20140206
  Receipt Date: 20140528
  Transmission Date: 20141212
  Serious: Yes (Hospitalization)
  Sender: FDA-Public Use
  Company Number: US-B.I. PHARMACEUTICALS,INC./RIDGEFIELD-2014-BI-04188BP

PATIENT
  Age: 56 Year
  Sex: Female
  Weight: 67 kg

DRUGS (1)
  1. COMBIVENT [Suspect]
     Indication: CHRONIC OBSTRUCTIVE PULMONARY DISEASE
     Dosage: DOSE PER APPLICATION: 20MCG / 100 MCG; DAILY DOSE: 80MCG /400MCG
     Route: 055
     Dates: start: 2013

REACTIONS (3)
  - Dyspnoea exertional [Recovered/Resolved]
  - Dyspnoea exertional [Not Recovered/Not Resolved]
  - Product quality issue [Unknown]
